FAERS Safety Report 12642844 (Version 7)
Quarter: 2019Q4

REPORT INFORMATION
  Report Type: Report from Study
  Country: IL (occurrence: IL)
  Receive Date: 20160811
  Receipt Date: 20191209
  Transmission Date: 20200122
  Serious: Yes (Other)
  Sender: FDA-Public Use
  Company Number: PHHY2014IL070635

PATIENT
  Age: 44 Year
  Sex: Female

DRUGS (9)
  1. TEGRETOL [Suspect]
     Active Substance: CARBAMAZEPINE
     Indication: PRODUCT USED FOR UNKNOWN INDICATION
     Dosage: UNK
     Route: 065
  2. EUTHYROX [Concomitant]
     Active Substance: LEVOTHYROXINE SODIUM
     Indication: HYPOTHYROIDISM
     Dosage: UNK
     Route: 065
     Dates: start: 20180725
  3. TARODENT [Concomitant]
     Indication: GINGIVITIS
     Dosage: UNK
     Route: 065
     Dates: start: 20180404, end: 20180408
  4. DAKTARIN [Concomitant]
     Active Substance: MICONAZOLE NITRATE
     Indication: GINGIVITIS
     Dosage: UNK
     Route: 065
     Dates: start: 20180404, end: 20180408
  5. TARGIN [Concomitant]
     Active Substance: NALOXONE HYDROCHLORIDE\OXYCODONE HYDROCHLORIDE
     Indication: PAIN
     Dosage: UNK
     Route: 065
     Dates: start: 20180404, end: 20180408
  6. SOLU-MEDROL [Concomitant]
     Active Substance: METHYLPREDNISOLONE SODIUM SUCCINATE
     Indication: MULTIPLE SCLEROSIS RELAPSE
     Dosage: UNK
     Route: 065
     Dates: start: 20180724, end: 20180801
  7. BACLOFEN. [Concomitant]
     Active Substance: BACLOFEN
     Indication: MUSCLE SPASTICITY
     Dosage: 10 MG, BID
     Route: 065
     Dates: start: 20120814
  8. GILENYA [Suspect]
     Active Substance: FINGOLIMOD HYDROCHLORIDE
     Indication: MULTIPLE SCLEROSIS
     Dosage: UNK, QD
     Route: 048
     Dates: start: 20120814
  9. BONDORMIN [Concomitant]
     Active Substance: BROTIZOLAM
     Indication: SLEEP DISORDER
     Dosage: UNK
     Route: 065
     Dates: start: 20180404, end: 20180404

REACTIONS (24)
  - Blood cholesterol increased [Unknown]
  - Non-cardiac chest pain [Recovered/Resolved]
  - Hypertension [Unknown]
  - Hyponatraemia [Unknown]
  - Low density lipoprotein increased [Unknown]
  - Heart rate decreased [Unknown]
  - Trigeminal neuralgia [Recovered/Resolved]
  - Blood albumin decreased [Unknown]
  - Haematoma [Recovered/Resolved]
  - Sensory disturbance [Recovered/Resolved]
  - Trigeminal neuralgia [Unknown]
  - Blood pressure diastolic decreased [Recovered/Resolved]
  - Muscular weakness [Recovered/Resolved]
  - Pelvic pain [Recovered/Resolved]
  - Myalgia [Recovered/Resolved]
  - Neutrophil count increased [Unknown]
  - Arthralgia [Recovered/Resolved]
  - Lymphocyte count decreased [Unknown]
  - High density lipoprotein increased [Unknown]
  - Limb injury [Recovered/Resolved]
  - Pain in extremity [Recovered/Resolved]
  - Gait disturbance [Unknown]
  - Protein total decreased [Unknown]
  - Pain in jaw [Recovered/Resolved]

NARRATIVE: CASE EVENT DATE: 20120815
